FAERS Safety Report 19375962 (Version 5)
Quarter: 2021Q3

REPORT INFORMATION
  Report Type: Report from Study
  Country: FR (occurrence: FR)
  Receive Date: 20210604
  Receipt Date: 20210806
  Transmission Date: 20211014
  Serious: Yes (Death, Hospitalization, Other)
  Sender: FDA-Public Use
  Company Number: FR-ROCHE-2839773

PATIENT
  Age: 47 Year
  Sex: Male

DRUGS (8)
  1. ATENOLOL. [Concomitant]
     Active Substance: ATENOLOL
  2. FUROSEMIDE. [Concomitant]
     Active Substance: FUROSEMIDE
  3. DEXAMETHASONE. [Suspect]
     Active Substance: DEXAMETHASONE
     Dosage: DOSE :? 4MG/ML
     Route: 042
     Dates: start: 20210504, end: 20210508
  4. DEXAMETHASONE. [Suspect]
     Active Substance: DEXAMETHASONE
     Indication: COVID-19
     Dosage: DOSE :? 4MG/ML
     Route: 042
     Dates: start: 20210429, end: 20210503
  5. POTASSIUM CHLORIDE. [Concomitant]
     Active Substance: POTASSIUM CHLORIDE
  6. AMLODIPINE [Concomitant]
     Active Substance: AMLODIPINE BESYLATE
  7. TOCILIZUMAB. [Suspect]
     Active Substance: TOCILIZUMAB
     Indication: COVID-19
     Dosage: DOSE:? 20 MG/ML
     Route: 042
     Dates: start: 20210429, end: 20210429
  8. DEXAMETHASONE. [Suspect]
     Active Substance: DEXAMETHASONE
     Dosage: DOSE :? 4MG/ML
     Route: 042
     Dates: start: 20210509, end: 20210512

REACTIONS (10)
  - Septic shock [Recovered/Resolved]
  - Cardiac arrest [Fatal]
  - Herpes simplex reactivation [Recovered/Resolved]
  - Systemic candida [Recovered/Resolved]
  - Pneumonia bacterial [Recovered/Resolved]
  - Device related infection [Recovered/Resolved]
  - Enterococcal bacteraemia [Recovered/Resolved]
  - Atelectasis [Recovered/Resolved]
  - Cardiogenic shock [Recovered/Resolved]
  - Cardio-respiratory arrest [Fatal]

NARRATIVE: CASE EVENT DATE: 20210501
